FAERS Safety Report 9526409 (Version 1)
Quarter: 2013Q3

REPORT INFORMATION
  Report Type: Spontaneous
  Country: US (occurrence: US)
  Receive Date: 20130916
  Receipt Date: 20130916
  Transmission Date: 20140515
  Serious: No
  Sender: FDA-Public Use
  Company Number: US-TEVA-432480USA

PATIENT
  Age: 40 Year
  Sex: Male
  Weight: 81.72 kg

DRUGS (2)
  1. QNASL [Suspect]
     Indication: SINUSITIS
     Dates: start: 20130904
  2. CEFADINIR [Concomitant]

REACTIONS (2)
  - Ageusia [Not Recovered/Not Resolved]
  - Anosmia [Not Recovered/Not Resolved]
